FAERS Safety Report 7450304-3 (Version None)
Quarter: 2011Q2

REPORT INFORMATION
  Report Type: 
  Country: None (occurrence: None)
  Receive Date: 20110502
  Receipt Date: 20110120
  Transmission Date: 20111010
  Serious: Yes (Hospitalization, Other)
  Sender: FDA-Public Use
  Company Number: US-BAYER-201034248NA

PATIENT
  Sex: Female
  Weight: 66 kg

DRUGS (7)
  1. YASMIN [Suspect]
     Indication: ACNE
     Dosage: UNK UNK, QD
     Route: 048
     Dates: start: 20070501, end: 20080101
  2. FOLIC ACID [Concomitant]
  3. METHADONE [Concomitant]
     Indication: PAIN
  4. OXYCONTIN [Concomitant]
     Indication: PAIN
  5. YAZ [Suspect]
     Indication: ACNE
     Dosage: UNK UNK, QD
     Route: 048
     Dates: start: 20070501, end: 20080101
  6. HYDROXYUREA [Concomitant]
  7. OXYCODONE [Concomitant]
     Indication: PAIN

REACTIONS (3)
  - PULMONARY EMBOLISM [None]
  - DEPRESSION [None]
  - PULMONARY THROMBOSIS [None]
